FAERS Safety Report 12956956 (Version 1)
Quarter: 2016Q4

REPORT INFORMATION
  Report Type: Spontaneous
  Country: US (occurrence: US)
  Receive Date: 20161118
  Receipt Date: 20161118
  Transmission Date: 20170207
  Serious: Yes (Other)
  Sender: FDA-Public Use
  Company Number: US-ELI_LILLY_AND_COMPANY-US201607012932

PATIENT
  Sex: Female
  Weight: 51.5 kg

DRUGS (5)
  1. CYMBALTA [Suspect]
     Active Substance: DULOXETINE HYDROCHLORIDE
     Indication: DEPRESSION
     Dosage: UNK, UNKNOWN
     Route: 065
  2. CYMBALTA [Suspect]
     Active Substance: DULOXETINE HYDROCHLORIDE
     Dosage: 5 MG, QD
     Route: 065
     Dates: end: 20150420
  3. CYMBALTA [Suspect]
     Active Substance: DULOXETINE HYDROCHLORIDE
     Dosage: 60 MG, QD
     Route: 065
  4. SEROQUEL [Concomitant]
     Active Substance: QUETIAPINE FUMARATE
     Indication: PRODUCT USED FOR UNKNOWN INDICATION
     Dosage: 25 MG, EACH EVENING
     Route: 065
  5. LORAZEPAM. [Concomitant]
     Active Substance: LORAZEPAM
     Indication: ANXIETY
     Dosage: 1 MG, PRN
     Route: 048

REACTIONS (15)
  - Irritability [Unknown]
  - Drug withdrawal syndrome [Unknown]
  - Suicidal ideation [Unknown]
  - Tremor [Unknown]
  - Nausea [Unknown]
  - Dizziness [Unknown]
  - Insomnia [Unknown]
  - Dysphoria [Unknown]
  - Agitation [Unknown]
  - Affect lability [Unknown]
  - Panic attack [Unknown]
  - Fatigue [Unknown]
  - Vomiting [Unknown]
  - Hyperhidrosis [Unknown]
  - Anxiety [Unknown]
